FAERS Safety Report 6866494-7 (Version None)
Quarter: 2010Q3

REPORT INFORMATION
  Report Type: 
  Country: None (occurrence: None)
  Receive Date: 20100722
  Receipt Date: 20100708
  Transmission Date: 20110219
  Serious: Yes (Other)
  Sender: FDA-Public Use
  Company Number: PHHY2010DE32341

PATIENT
  Sex: Female
  Weight: 60 kg

DRUGS (10)
  1. EXFORGE HCT [Suspect]
     Indication: HYPERTENSION
     Dosage: 1 DF/D
     Route: 048
     Dates: start: 20100506, end: 20100508
  2. EXFORGE [Interacting]
     Indication: HYPERTENSION
     Dosage: 160/5 MG, 1 DF, PER DAY
     Route: 048
  3. EXFORGE [Interacting]
     Dosage: 80/5 MG, 1 DF, PER DAY
     Route: 048
     Dates: start: 20100509
  4. EXFORGE [Interacting]
     Dosage: 80/5 MG, HALF TABLET PER DAY
     Route: 048
     Dates: end: 20100627
  5. LEXOTANIL [Interacting]
     Indication: NEUROBORRELIOSIS
     Dosage: 3 MG PER DAY
     Dates: end: 20100601
  6. LORAZEPAM [Interacting]
     Indication: NEUROBORRELIOSIS
     Dosage: 1.25 MG/D
     Dates: start: 20100601
  7. ESTRADERM [Concomitant]
     Dosage: 50 UG PER DAY
  8. FENTANYL [Concomitant]
     Dosage: 2.5 UG, UNK
  9. VITAMIN D [Concomitant]
     Dosage: UNK
  10. NULYTELY [Concomitant]
     Indication: DIVERTICULUM
     Dosage: UNK

REACTIONS (16)
  - ANGER [None]
  - AORTIC VALVE INCOMPETENCE [None]
  - BLOOD PRESSURE DIASTOLIC DECREASED [None]
  - CYANOSIS [None]
  - DIARRHOEA [None]
  - DIZZINESS [None]
  - DRUG EFFECT INCREASED [None]
  - DRUG INTERACTION [None]
  - DRUG WITHDRAWAL SYNDROME [None]
  - ERYTHEMA [None]
  - GOUT [None]
  - HEADACHE [None]
  - JOINT SWELLING [None]
  - MENIERE'S DISEASE [None]
  - PAIN IN EXTREMITY [None]
  - SUICIDAL IDEATION [None]
